FAERS Safety Report 15984209 (Version 2)
Quarter: 2019Q2

REPORT INFORMATION
  Report Type: Report from Study
  Country: None (occurrence: US)
  Receive Date: 20190219
  Receipt Date: 20190401
  Transmission Date: 20190711
  Serious: Yes (Hospitalization)
  Sender: FDA-Public Use
  Company Number: US-ABBVIE-19K-163-2669820-00

PATIENT
  Age: 66 Year
  Sex: Male
  Weight: 92.16 kg

DRUGS (1)
  1. HUMIRA [Suspect]
     Active Substance: ADALIMUMAB
     Indication: CROHN^S DISEASE
     Route: 058
     Dates: end: 201901

REACTIONS (2)
  - Gastrointestinal disorder [Recovering/Resolving]
  - Therapeutic product effect decreased [Unknown]
